FAERS Safety Report 15801528 (Version 3)
Quarter: 2019Q1

REPORT INFORMATION
  Report Type: Spontaneous
  Country: GB (occurrence: GB)
  Receive Date: 20190109
  Receipt Date: 20190213
  Transmission Date: 20190417
  Serious: Yes (Hospitalization, Other)
  Sender: FDA-Public Use
  Company Number: GB-MYLANLABS-2019M1001258

PATIENT
  Age: 42 Year
  Sex: Male

DRUGS (2)
  1. CLOZAPINE. [Suspect]
     Active Substance: CLOZAPINE
     Indication: SCHIZOPHRENIA
     Route: 065
  2. HYOSCINE HYDROBROMIDE [Concomitant]
     Active Substance: SCOPOLAMINE
     Indication: SALIVARY HYPERSECRETION
     Route: 065

REACTIONS (8)
  - Dyskinesia [Recovered/Resolved]
  - Drug withdrawal syndrome [Recovered/Resolved]
  - Salivary hypersecretion [Unknown]
  - Dystonia [Recovered/Resolved]
  - Psychotic disorder [Recovered/Resolved]
  - Gait disturbance [Recovered/Resolved]
  - Speech disorder [Unknown]
  - Sinus tachycardia [Unknown]
